FAERS Safety Report 8083940-4 (Version None)
Quarter: 2012Q1

REPORT INFORMATION
  Report Type: 
  Country: None (occurrence: None)
  Receive Date: 20120128
  Receipt Date: 20110308
  Transmission Date: 20120608
  Serious: Yes (Other)
  Sender: FDA-Public Use
  Company Number: US-ABBOTT-11P-163-0697298-00

PATIENT
  Sex: Female
  Weight: 74.91 kg

DRUGS (3)
  1. MAXALT [Concomitant]
     Indication: MIGRAINE
  2. HUMIRA [Suspect]
     Dates: start: 20101101
  3. HUMIRA [Suspect]
     Indication: PSORIATIC ARTHROPATHY
     Route: 058
     Dates: start: 20050101, end: 20101001

REACTIONS (8)
  - EAR INFECTION [None]
  - FEELING ABNORMAL [None]
  - TYMPANIC MEMBRANE PERFORATION [None]
  - TOOTH ABSCESS [None]
  - COUGH [None]
  - ANXIETY [None]
  - PYREXIA [None]
  - SINUS CONGESTION [None]
